FAERS Safety Report 7126418-4 (Version None)
Quarter: 2010Q4

REPORT INFORMATION
  Report Type: 
  Country: None (occurrence: None)
  Receive Date: 20101129
  Receipt Date: 20101124
  Transmission Date: 20110411
  Serious: Yes (Death)
  Sender: FDA-Public Use
  Company Number: JP-ABBOTT-10P-087-0687651-00

PATIENT
  Age: 21 Year
  Sex: Male

DRUGS (2)
  1. SEVORANE [Suspect]
     Indication: ANAESTHESIA
     Route: 065
     Dates: start: 20001201, end: 20001201
  2. PROPOFOL [Suspect]
     Indication: ANAESTHESIA
     Route: 065
     Dates: start: 20001201, end: 20001201

REACTIONS (2)
  - DISSEMINATED INTRAVASCULAR COAGULATION [None]
  - HYPERTHERMIA MALIGNANT [None]
